FAERS Safety Report 16161337 (Version 1)
Quarter: 2019Q2

REPORT INFORMATION
  Report Type: Spontaneous
  Country: US (occurrence: US)
  Receive Date: 20190405
  Receipt Date: 20190405
  Transmission Date: 20190711
  Serious: No
  Sender: FDA-Public Use
  Company Number: US-009507513-1904USA000292

PATIENT
  Sex: Female

DRUGS (7)
  1. INDOMETHACIN. [Concomitant]
     Active Substance: INDOMETHACIN
  2. CLOMIPHENE CITRATE. [Concomitant]
     Active Substance: CLOMIPHENE CITRATE
  3. ESTRADIOL. [Suspect]
     Active Substance: ESTRADIOL
     Dosage: 0 .1 M5 PATCH
  4. PROGESTERONE. [Concomitant]
     Active Substance: PROGESTERONE
  5. FOLLISTIM AQ [Suspect]
     Active Substance: FOLLITROPIN
     Indication: INFERTILITY FEMALE
     Dosage: 300 IU/0.36ML
     Route: 058
     Dates: start: 20171128
  6. GANIRELIX ACETATE INJECTION [Suspect]
     Active Substance: GANIRELIX ACETATE
     Indication: INFERTILITY FEMALE
     Dosage: 250 MICROGRAM, QD DAY 5 ON OF STEAM
     Route: 058
     Dates: start: 20171128
  7. NOVAREL [Concomitant]
     Active Substance: CHORIOGONADOTROPIN ALFA

REACTIONS (3)
  - Application site pruritus [Recovered/Resolved]
  - Application site erythema [Not Recovered/Not Resolved]
  - Application site swelling [Not Recovered/Not Resolved]
